FAERS Safety Report 6235058-0 (Version None)
Quarter: 2009Q2

REPORT INFORMATION
  Report Type: 
  Country: None (occurrence: None)
  Receive Date: 20090615
  Receipt Date: 20090608
  Transmission Date: 20091009
  Serious: Yes (Hospitalization)
  Sender: FDA-Public Use
  Company Number: B0474961A

PATIENT
  Age: 50 Year
  Sex: Male
  Weight: 111.3581 kg

DRUGS (5)
  1. PAZOPANIB TABLET (PAZOPANIB) [Suspect]
     Indication: MALIGNANT GLIOMA
     Dosage: ORAL
     Route: 048
     Dates: start: 20070417, end: 20070531
  2. LAPATINIB TABLET (LAPATINIB) [Suspect]
     Indication: MALIGNANT GLIOMA
     Dosage: ORAL
     Route: 048
     Dates: start: 20070417, end: 20070531
  3. CARBAMAZEPINE [Suspect]
     Indication: CONVULSION
     Dosage: 300 MG / TWICE PER DAY / ORAL
     Route: 048
     Dates: start: 20051201
  4. FLUCLOXACILLIN SODIUM (FORMULATION UNKNOWN) (FLUCLOXACILLIN SODIUM) [Suspect]
     Indication: FURUNCLE
     Dosage: 1 GRAM(S) / FOUR TIMES PER DAY / ORAL
     Route: 048
     Dates: start: 20070515, end: 20070529
  5. DEXAMETHASONE [Concomitant]

REACTIONS (16)
  - ALANINE AMINOTRANSFERASE INCREASED [None]
  - APHASIA [None]
  - ASPARTATE AMINOTRANSFERASE INCREASED [None]
  - BLOOD ALKALINE PHOSPHATASE INCREASED [None]
  - BLOOD LACTATE DEHYDROGENASE INCREASED [None]
  - FURUNCLE [None]
  - GAMMA-GLUTAMYLTRANSFERASE INCREASED [None]
  - HAEMORRHAGE [None]
  - HEMIPARESIS [None]
  - LABORATORY TEST INTERFERENCE [None]
  - MALIGNANT GLIOMA [None]
  - MALIGNANT NEOPLASM PROGRESSION [None]
  - OEDEMA [None]
  - PLATELET COUNT DECREASED [None]
  - SOMNOLENCE [None]
  - THROMBOCYTOPENIA [None]
